FAERS Safety Report 17672877 (Version 2)
Quarter: 2020Q2

REPORT INFORMATION
  Report Type: Report from Study
  Country: None (occurrence: MX)
  Receive Date: 20200416
  Receipt Date: 20200420
  Transmission Date: 20200713
  Serious: Yes (Hospitalization, Other)
  Sender: FDA-Public Use
  Company Number: MX-ABBVIE-20K-107-3365122-00

PATIENT
  Age: 58 Year
  Sex: Female

DRUGS (3)
  1. HUMIRA [Suspect]
     Active Substance: ADALIMUMAB
     Indication: ANKYLOSING SPONDYLITIS
     Route: 058
     Dates: start: 2018
  2. GABAPENTINE [Concomitant]
     Active Substance: GABAPENTIN
     Indication: ANKYLOSING SPONDYLITIS
  3. METHOTREXATE. [Concomitant]
     Active Substance: METHOTREXATE
     Indication: ANKYLOSING SPONDYLITIS

REACTIONS (11)
  - Bronchospasm [Unknown]
  - Visual impairment [Unknown]
  - Liver injury [Unknown]
  - Pneumothorax [Unknown]
  - Lung disorder [Unknown]
  - Pulmonary tuberculosis [Recovering/Resolving]
  - Lung perforation [Unknown]
  - Seizure [Unknown]
  - Tuberculosis of central nervous system [Recovering/Resolving]
  - Pneumonia [Unknown]
  - Renal injury [Unknown]

NARRATIVE: CASE EVENT DATE: 202002
